FAERS Safety Report 6526814-X (Version None)
Quarter: 2009Q4

REPORT INFORMATION
  Report Type: 
  Country: None (occurrence: None)
  Receive Date: 20091230
  Receipt Date: 20091215
  Transmission Date: 20100525
  Serious: Yes (Death, Hospitalization)
  Sender: FDA-Public Use
  Company Number: 1000010906

PATIENT
  Age: 82 Year
  Sex: Female

DRUGS (18)
  1. MEMANTINE HCL [Suspect]
     Indication: DEMENTIA ALZHEIMER'S TYPE
     Dosage: 10 MG (10 MG, 1 IN 1 D), ORAL
     Route: 048
     Dates: start: 20091126, end: 20091202
  2. SEROQUEL [Suspect]
     Indication: AGITATION
     Dosage: 5 MG (5 MG, 1 IN 1 D), ORAL
     Route: 048
     Dates: start: 20091123, end: 20091202
  3. SEROQUEL [Suspect]
     Indication: RESTLESSNESS
     Dosage: 5 MG (5 MG, 1 IN 1 D), ORAL
     Route: 048
     Dates: start: 20091123, end: 20091202
  4. ALDACTONE [Suspect]
     Indication: ESSENTIAL HYPERTENSION
     Dosage: 25 MG (25 MG, 1 IN 1 D), ORAL
     Route: 048
     Dates: end: 20091124
  5. PANTOPRAZOLE [Suspect]
     Dosage: 40 MG (40 MG, 1 IN 1 D), ORAL
     Route: 048
     Dates: end: 20091202
  6. DAFALGAN [Suspect]
     Dosage: 1500 MG (500 MG, 3 IN 1 D), ORAL
     Route: 048
     Dates: start: 20091127, end: 20091128
  7. BELOC ZOK [Suspect]
     Indication: ESSENTIAL HYPERTENSION
     Dosage: 50 MG (25 MG, 2  IN 1 D), ORAL
     Route: 048
     Dates: start: 20091128
  8. ATORVASTATIN CALCIUM [Suspect]
     Indication: HYPERCHOLESTEROLAEMIA
     Dosage: 20 MG (20 MG, 1 IN 1 D), ORAL
     Route: 048
     Dates: end: 20091202
  9. ASPIRIN [Concomitant]
  10. BUDENOFALK [Concomitant]
  11. TORSEMIDE [Concomitant]
  12. VITARUBIN [Concomitant]
  13. FRAGMIN [Concomitant]
  14. AUGMENTIN [Concomitant]
  15. TRIATEC [Concomitant]
  16. ZYLORIC [Concomitant]
  17. CALCIMAGON D3 [Concomitant]
  18. METFORMIN [Concomitant]

REACTIONS (9)
  - BLOOD CREATININE INCREASED [None]
  - BLOOD PRESSURE DIASTOLIC DECREASED [None]
  - C-REACTIVE PROTEIN INCREASED [None]
  - HEART RATE INCREASED [None]
  - HEPATOCELLULAR INJURY [None]
  - INFECTION [None]
  - INTERNATIONAL NORMALISED RATIO INCREASED [None]
  - MYOGLOBIN BLOOD INCREASED [None]
  - RESPIRATORY DISORDER [None]
